FAERS Safety Report 4570120-X (Version None)
Quarter: 2005Q1

REPORT INFORMATION
  Report Type: 
  Country: None (occurrence: None)
  Receive Date: 20050131
  Receipt Date: 20050120
  Transmission Date: 20050727
  Serious: Yes (Other)
  Sender: FDA-Public Use
  Company Number: S05-USA-00337-01

PATIENT
  Age: 50 Year
  Sex: Male

DRUGS (3)
  1. CAMPRAL [Suspect]
     Indication: ALCOHOLISM
     Dosage: 666 MG TID PO
     Route: 048
     Dates: start: 20050112
  2. NALTREXONE [Suspect]
     Indication: ALCOHOLISM
     Dates: end: 20050112
  3. ALCOHOL [Suspect]
     Dates: start: 20050115, end: 20050115

REACTIONS (3)
  - ALCOHOL USE [None]
  - COMPLEX PARTIAL SEIZURES [None]
  - DRUG SCREEN POSITIVE [None]
